FAERS Safety Report 9135387 (Version 1)
Quarter: 2013Q1

REPORT INFORMATION
  Report Type: Spontaneous
  Country: US (occurrence: US)
  Receive Date: 20130304
  Receipt Date: 20130304
  Transmission Date: 20140127
  Serious: No
  Sender: FDA-Public Use
  Company Number: US-ENDO PHARMACEUTICALS INC.-ENDC20110092

PATIENT
  Sex: Female
  Weight: 47.67 kg

DRUGS (1)
  1. ENDOCET [Suspect]
     Indication: BACK PAIN
     Dosage: 30/975 MG
     Route: 048
     Dates: start: 201104

REACTIONS (2)
  - Chromaturia [Not Recovered/Not Resolved]
  - Pruritus [Unknown]
